FAERS Safety Report 15685874 (Version 1)
Quarter: 2018Q4

REPORT INFORMATION
  Report Type: Spontaneous
  Country: US (occurrence: US)
  Receive Date: 20181121
  Receipt Date: 20181121
  Transmission Date: 20190205
  Serious: Yes (Hospitalization)
  Sender: FDA-Public Use
  Company Number: None

PATIENT
  Age: 62 Year
  Sex: Female
  Weight: 92 kg

DRUGS (1)
  1. SAXAGLIPTIN [Suspect]
     Active Substance: SAXAGLIPTIN
     Indication: DIABETES MELLITUS
     Route: 048
     Dates: start: 20181003, end: 20181026

REACTIONS (9)
  - Dizziness [None]
  - Malaise [None]
  - Nausea [None]
  - Chest pain [None]
  - Physical deconditioning [None]
  - Blood glucose increased [None]
  - Chest discomfort [None]
  - Feeling abnormal [None]
  - Dyspnoea [None]

NARRATIVE: CASE EVENT DATE: 20181026
